FAERS Safety Report 12267989 (Version 1)
Quarter: 2016Q2

REPORT INFORMATION
  Report Type: Other
  Country: CA (occurrence: CA)
  Receive Date: 20160414
  Receipt Date: 20160414
  Transmission Date: 20160815
  Serious: Yes (Hospitalization)
  Sender: FDA-Public Use
  Company Number: CA-ENDO PHARMACEUTICALS INC-2016-002523

PATIENT
  Age: 39 Year
  Sex: Female

DRUGS (2)
  1. PREDNISONE TABLETS [Suspect]
     Active Substance: PREDNISONE
     Indication: OPTIC NEURITIS
     Route: 048
  2. HYDROCORTISONE. [Suspect]
     Active Substance: HYDROCORTISONE
     Indication: OPTIC NEURITIS
     Route: 042

REACTIONS (1)
  - Coronary artery dissection [Recovered/Resolved]
